FAERS Safety Report 7701010-9 (Version None)
Quarter: 2011Q3

REPORT INFORMATION
  Report Type: 
  Country: None (occurrence: None)
  Receive Date: 20110822
  Receipt Date: 20110811
  Transmission Date: 20111222
  Serious: Yes (Other)
  Sender: FDA-Public Use
  Company Number: US-JNJFOC-20110806260

PATIENT
  Sex: Female
  Weight: 56.25 kg

DRUGS (7)
  1. REMICADE [Suspect]
     Indication: COLITIS ULCERATIVE
     Route: 042
     Dates: start: 20080801
  2. HYDROCODONE [Concomitant]
     Indication: ARTHRITIS
     Dosage: 2.5-250 MG/TABLET/5-500 MG/HALF TABLET AS NEEDED
     Route: 048
     Dates: start: 20060101
  3. LISINOPRIL [Concomitant]
     Indication: HYPERTENSION
     Route: 048
     Dates: start: 20090101
  4. PEPCID [Concomitant]
     Indication: GASTROOESOPHAGEAL REFLUX DISEASE
     Route: 048
  5. LORAZEPAM [Concomitant]
     Indication: ANXIETY
     Route: 048
     Dates: start: 20070101
  6. ASPIRIN [Concomitant]
     Indication: PROPHYLAXIS
     Route: 048
     Dates: start: 20070101
  7. PREDNISONE [Concomitant]
     Indication: INFLAMMATION
     Dates: start: 19720101

REACTIONS (6)
  - MALAISE [None]
  - VITAMIN D DECREASED [None]
  - MUSCLE SPASMS [None]
  - PRURITUS GENERALISED [None]
  - IRRITABLE BOWEL SYNDROME [None]
  - HYPOTENSION [None]
